FAERS Safety Report 22393377 (Version 2)
Quarter: 2023Q2

REPORT INFORMATION
  Report Type: Spontaneous
  Country: BE (occurrence: BE)
  Receive Date: 20230601
  Receipt Date: 20230607
  Transmission Date: 20230722
  Serious: Yes (Hospitalization)
  Sender: FDA-Public Use
  Company Number: BE-TEVA-2023-BE-2892061

PATIENT
  Age: 55 Year
  Weight: 46 kg

DRUGS (8)
  1. VORICONAZOLE [Interacting]
     Active Substance: VORICONAZOLE
     Indication: Aspergillus infection
     Dosage: 600 MILLIGRAM DAILY; LOADING DOSE ON DAY 1, 300MG EVERY 12 HOURS
     Route: 065
  2. VORICONAZOLE [Interacting]
     Active Substance: VORICONAZOLE
     Dosage: 400 MILLIGRAM DAILY; AS A MAINTENANCE DOSE AFTERWARDS, 200MG EVERY 12 HOURS
     Route: 065
  3. ISAVUCONAZOLE [Interacting]
     Active Substance: ISAVUCONAZOLE
     Indication: Aspergillus infection
     Dosage: 600 MILLIGRAM DAILY; LOADING DOSE, 200MG EVERY 8 HOURS
     Route: 042
  4. ISAVUCONAZOLE [Interacting]
     Active Substance: ISAVUCONAZOLE
     Dosage: 200 MILLIGRAM DAILY; MAINTENANCE DOSE, 200MG EVERY 24 HOURS
     Route: 042
  5. PHENOBARBITAL [Interacting]
     Active Substance: PHENOBARBITAL
     Indication: Status epilepticus
     Route: 042
  6. LEVETIRACETAM [Concomitant]
     Active Substance: LEVETIRACETAM
     Indication: Status epilepticus
     Route: 065
  7. LACOSAMIDE [Concomitant]
     Active Substance: LACOSAMIDE
     Indication: Status epilepticus
     Route: 042
  8. AMPHOTERICIN B [Concomitant]
     Active Substance: AMPHOTERICIN B
     Indication: Aspergillus infection
     Dosage: 150 MILLIGRAM DAILY; 150 MG EVERY 24 HOURS
     Route: 065

REACTIONS (2)
  - Drug level decreased [Recovered/Resolved]
  - Drug interaction [Unknown]
